FAERS Safety Report 8831536 (Version 1)
Quarter: 2012Q4

REPORT INFORMATION
  Report Type: Report from Study
  Country: CL (occurrence: CL)
  Receive Date: 20121008
  Receipt Date: 20121008
  Transmission Date: 20130627
  Serious: Yes (Hospitalization)
  Sender: FDA-Public Use
  Company Number: CL-GLAXOSMITHKLINE-B0835909A

PATIENT
  Sex: Male

DRUGS (1)
  1. PROPRANOLOL [Suspect]
     Indication: HAEMANGIOMA
     Route: 048

REACTIONS (4)
  - Accidental overdose [Unknown]
  - Restlessness [Unknown]
  - Euphoric mood [Unknown]
  - Insomnia [Unknown]
